FAERS Safety Report 5052999-0 (Version None)
Quarter: 2006Q3

REPORT INFORMATION
  Report Type: 
  Country: None (occurrence: None)
  Receive Date: 20060712
  Receipt Date: 20060626
  Transmission Date: 20061208
  Serious: Yes (Other)
  Sender: FDA-Public Use
  Company Number: GP022506

PATIENT
  Sex: Female
  Weight: 61.2356 kg

DRUGS (4)
  1. GRIS-PEG 250MG TABLET, PEDINOL PHARMACAL INC. [Suspect]
     Indication: ONYCHOMYCOSIS
     Dosage: 250 MG TID, ORALLY
     Route: 048
  2. TEGRETOL [Concomitant]
  3. DEPAKOTE [Concomitant]
  4. SYNTHROID [Concomitant]

REACTIONS (1)
  - COMPLEX PARTIAL SEIZURES [None]
